FAERS Safety Report 5810627-8 (Version None)
Quarter: 2008Q3

REPORT INFORMATION
  Report Type: 
  Country: None (occurrence: None)
  Receive Date: 20080710
  Receipt Date: 20080701
  Transmission Date: 20090109
  Serious: Yes (Other)
  Sender: FDA-Public Use
  Company Number: 163-20785-08070026

PATIENT
  Sex: Male

DRUGS (1)
  1. THALOMID [Suspect]
     Indication: MULTIPLE MYELOMA
     Dosage: 50, 1 IN 1 D, ORAL
     Route: 048
     Dates: start: 20061221

REACTIONS (2)
  - CARDIAC DISORDER [None]
  - RENAL DISORDER [None]
